FAERS Safety Report 6644622-6 (Version None)
Quarter: 2010Q1

REPORT INFORMATION
  Report Type: 
  Country: None (occurrence: None)
  Receive Date: 20100322
  Receipt Date: 20100311
  Transmission Date: 20100710
  Serious: Yes (Hospitalization, Other)
  Sender: FDA-Public Use
  Company Number: US-SANOFI-AVENTIS-2010SA015053

PATIENT
  Age: 59 Year
  Sex: Female

DRUGS (3)
  1. LANTUS [Suspect]
     Indication: DIABETES MELLITUS
     Dosage: DOSE:150 UNIT(S)
     Route: 058
     Dates: start: 20070101
  2. OPTICLICK [Suspect]
     Dates: start: 20070101
  3. HUMALOG [Concomitant]

REACTIONS (3)
  - FOOT OPERATION [None]
  - OSTEOMYELITIS [None]
  - WHEELCHAIR USER [None]
